FAERS Safety Report 17660185 (Version 2)
Quarter: 2020Q3

REPORT INFORMATION
  Report Type: Spontaneous
  Country: US (occurrence: US)
  Receive Date: 20200413
  Receipt Date: 20200714
  Transmission Date: 20201102
  Serious: Yes (Other)
  Sender: FDA-Public Use
  Company Number: US-PFIZER INC-2020148137

PATIENT
  Age: 59 Year
  Sex: Female

DRUGS (1)
  1. XELJANZ XR [Suspect]
     Active Substance: TOFACITINIB CITRATE
     Indication: RHEUMATOID ARTHRITIS
     Dosage: 11 MG, DAILY
     Route: 048
     Dates: start: 20190218, end: 202004

REACTIONS (9)
  - Ligament injury [Unknown]
  - Vitamin D deficiency [Unknown]
  - Meniscus injury [Unknown]
  - Therapeutic product effect incomplete [Unknown]
  - Arthralgia [Unknown]
  - Gait inability [Unknown]
  - Renal failure [Unknown]
  - Vitamin B complex deficiency [Unknown]
  - Weight increased [Unknown]

NARRATIVE: CASE EVENT DATE: 202003
